FAERS Safety Report 5474097-4 (Version None)
Quarter: 2007Q3

REPORT INFORMATION
  Report Type: 
  Country: None (occurrence: None)
  Receive Date: 20070928
  Receipt Date: 20070928
  Transmission Date: 20080115
  Serious: Yes (Other)
  Sender: FDA-Public Use
  Company Number: None

PATIENT
  Sex: Female
  Weight: 63.5036 kg

DRUGS (1)
  1. ATIVAN [Suspect]
     Indication: ANXIETY DISORDER
     Dosage: 0.5MG TID PRN PO
     Route: 048
     Dates: start: 20070801

REACTIONS (3)
  - ABDOMINAL PAIN [None]
  - MENTAL STATUS CHANGES [None]
  - NAUSEA [None]
